FAERS Safety Report 11190252 (Version 1)
Quarter: 2015Q2

REPORT INFORMATION
  Report Type: Spontaneous
  Country: US (occurrence: US)
  Receive Date: 20150615
  Receipt Date: 20150615
  Transmission Date: 20150821
  Serious: Yes (Other)
  Sender: FDA-Public Use
  Company Number: US-ELI_LILLY_AND_COMPANY-US201506004670

PATIENT

DRUGS (3)
  1. GEMZAR [Suspect]
     Active Substance: GEMCITABINE HYDROCHLORIDE
     Indication: NEOPLASM MALIGNANT
     Dosage: UNK UNK, CYCLICAL
     Route: 042
  2. GEMZAR [Suspect]
     Active Substance: GEMCITABINE HYDROCHLORIDE
     Dosage: UNK UNK, CYCLICAL
     Route: 042
  3. CABAZITAXEL [Suspect]
     Active Substance: CABAZITAXEL
     Indication: NEOPLASM MALIGNANT
     Dosage: UNK MG/M2, UNK
     Route: 042

REACTIONS (1)
  - Bronchiolitis [Unknown]
